FAERS Safety Report 21436992 (Version 1)
Quarter: 2022Q4

REPORT INFORMATION
  Report Type: Spontaneous
  Country: US (occurrence: US)
  Receive Date: 20221010
  Receipt Date: 20221010
  Transmission Date: 20230113
  Serious: Yes (Hospitalization, Other)
  Sender: FDA-Public Use
  Company Number: US-PFIZER INC-202201206634

PATIENT
  Age: 68 Year
  Sex: Female
  Weight: 43.091 kg

DRUGS (1)
  1. PAXLOVID [Suspect]
     Active Substance: NIRMATRELVIR\RITONAVIR
     Indication: COVID-19 treatment
     Dosage: 3 DF, 2X/DAY, (THREE IN THE MORNING AND THREE IN THE EVENING FOR 6 DAYS)
     Dates: start: 20220802

REACTIONS (4)
  - Feeding disorder [Unknown]
  - Weight decreased [Unknown]
  - Abdominal pain upper [Unknown]
  - Dehydration [Unknown]
